FAERS Safety Report 5866772-4 (Version None)
Quarter: 2008Q3

REPORT INFORMATION
  Report Type: 
  Country: None (occurrence: None)
  Receive Date: 20080828
  Receipt Date: 20080828
  Transmission Date: 20090109
  Serious: Yes (Other)
  Sender: FDA-Public Use
  Company Number: None

PATIENT
  Age: 37 Year
  Sex: Female
  Weight: 71.6683 kg

DRUGS (1)
  1. CYMBALTA [Suspect]
     Indication: GASTROINTESTINAL DISORDER
     Dosage: 30 MG ONCE DAILY PO
     Route: 048
     Dates: start: 20080810, end: 20080811

REACTIONS (5)
  - CONFUSIONAL STATE [None]
  - HEART RATE INCREASED [None]
  - NAUSEA [None]
  - PALPITATIONS [None]
  - TREMOR [None]
